FAERS Safety Report 5967538-7 (Version None)
Quarter: 2008Q4

REPORT INFORMATION
  Report Type: 
  Country: None (occurrence: None)
  Receive Date: 20081125
  Receipt Date: 20081118
  Transmission Date: 20090506
  Serious: Yes (Death, Hospitalization)
  Sender: FDA-Public Use
  Company Number: CH-PFIZER INC-2008097268

PATIENT
  Sex: Female

DRUGS (10)
  1. CAMPTOSAR [Suspect]
     Indication: CARCINOMA IN SITU
     Route: 042
     Dates: start: 20071201, end: 20080201
  2. FLUOROURACIL [Suspect]
     Indication: CARCINOMA IN SITU
     Route: 042
     Dates: start: 20071201, end: 20080201
  3. AVASTIN [Suspect]
     Indication: CARCINOMA IN SITU
     Dosage: TEXT:25 MG/ML
     Route: 042
     Dates: start: 20071201
  4. PREDNISONE TAB [Concomitant]
     Route: 048
  5. SIMVASTATIN [Concomitant]
     Route: 048
  6. NEXIUM [Concomitant]
     Route: 048
  7. BENERVA [Concomitant]
     Route: 048
  8. CALCIUM CARBONATE/COLECALCIFEROL [Concomitant]
     Dosage: TEXT:1 DOSAGE FORM
     Route: 048
  9. INSULIN [Concomitant]
     Route: 058
  10. ELOXATIN [Concomitant]

REACTIONS (2)
  - ACUTE CORONARY SYNDROME [None]
  - CARDIOMYOPATHY [None]
